FAERS Safety Report 6624312-6 (Version None)
Quarter: 2010Q1

REPORT INFORMATION
  Report Type: 
  Country: None (occurrence: None)
  Receive Date: 20100310
  Receipt Date: 20100303
  Transmission Date: 20100710
  Serious: Yes (Other)
  Sender: FDA-Public Use
  Company Number: BR-ROCHE-682175

PATIENT
  Sex: Female
  Weight: 52 kg

DRUGS (3)
  1. ROACUTAN [Suspect]
     Indication: ACNE
     Route: 048
     Dates: start: 20070701, end: 20070901
  2. ROACUTAN [Suspect]
     Dosage: LOT NO: B4514B01
     Route: 048
     Dates: start: 20090701
  3. BELARA [Concomitant]
     Indication: CONTRACEPTION

REACTIONS (4)
  - OROPHARYNGEAL PAIN [None]
  - PROTHROMBIN TIME SHORTENED [None]
  - SKIN ATROPHY [None]
  - THERAPEUTIC RESPONSE DECREASED [None]
